FAERS Safety Report 16699903 (Version 1)
Quarter: 2019Q3

REPORT INFORMATION
  Report Type: Spontaneous
  Country: PK (occurrence: PK)
  Receive Date: 20190813
  Receipt Date: 20190813
  Transmission Date: 20191004
  Serious: Yes (Hospitalization)
  Sender: FDA-Public Use
  Company Number: PK-ALLERGAN-1932981US

PATIENT
  Sex: Female

DRUGS (1)
  1. TIMOLOL UNK [Suspect]
     Active Substance: TIMOLOL
     Indication: OPEN ANGLE GLAUCOMA
     Dosage: UNK, QPM (AT NIGHT, 15-30 MIN BEFORE DINNER)
     Route: 047

REACTIONS (2)
  - Loss of consciousness [Recovered/Resolved]
  - Bradyarrhythmia [Unknown]
